FAERS Safety Report 9284617 (Version 2)
Quarter: 2013Q2

REPORT INFORMATION
  Report Type: Spontaneous
  Country: US (occurrence: US)
  Receive Date: 20130513
  Receipt Date: 20130625
  Transmission Date: 20140414
  Serious: No
  Sender: FDA-Public Use
  Company Number: US-009507513-1305USA002535

PATIENT
  Sex: Female
  Weight: 52.15 kg

DRUGS (8)
  1. VICTRELIS [Suspect]
     Indication: HEPATITIS C
     Dosage: TAKE 4 CAPS BY MOUTH THREE TIMES A DAY (EVERY 7-9 HOURS) WITH SNACK
     Route: 048
  2. PEGASYS [Suspect]
     Indication: HEPATITIS C
     Dosage: 180 MICROGRAM/0.5 ML PROCLICK MONTHLY
     Route: 058
  3. RIBAVIRIN [Suspect]
     Indication: HEPATITIS C
     Dosage: 200 MG, UNK
     Route: 048
  4. RIBAPAK [Suspect]
     Dosage: 600/400 MG
     Route: 048
  5. FUROSEMIDE [Concomitant]
     Dosage: 20 MG, UNK
     Route: 048
  6. HYDROCHLOROT [Concomitant]
     Dosage: 25 MG, UNK
     Route: 048
  7. CENTRUM (PERFOMANCE (ASIAN GINSENG (+) GINKGO (+) MINERALS (UNSPECIFIE [Concomitant]
     Route: 048
  8. PROMACTA [Concomitant]
     Dosage: 25 MG, UNK

REACTIONS (10)
  - Fluid retention [Unknown]
  - Thrombocytopenia [Unknown]
  - Foot fracture [Unknown]
  - Oedema peripheral [Unknown]
  - Bacterial infection [Recovering/Resolving]
  - Dysgeusia [Recovering/Resolving]
  - Diarrhoea [Recovering/Resolving]
  - Aphagia [Unknown]
  - Headache [Recovered/Resolved]
  - Nausea [Unknown]
